FAERS Safety Report 8710618 (Version 2)
Quarter: 2012Q4

REPORT INFORMATION
  Report Type: 
  Country: US (occurrence: US)
  Receive Date: 20120807
  Receipt Date: 20121012
  Transmission Date: 20130627
  Serious: Yes (Hospitalization)
  Sender: FDA-Public Use
  Company Number: US-INCYTE CORPORATION-2012IN001421

PATIENT
  Age: 67 Year
  Sex: Female

DRUGS (18)
  1. JAKAFI [Suspect]
     Indication: MYELOFIBROSIS
     Dosage: 20 mg, bid
     Route: 048
     Dates: start: 20111230, end: 20120127
  2. JAKAFI [Suspect]
     Dosage: 20 mg, bid
     Route: 048
     Dates: start: 20120203, end: 20120620
  3. MORPHINE [Suspect]
     Dosage: 1-2 tablets, bid
     Route: 048
  4. NORCO [Suspect]
     Dosage: 750 mg (1-2 tablets every 4-6 hours)
     Route: 048
  5. CLONAZEPAM [Suspect]
     Dosage: 0.5 mg, qd
  6. LEVOTHYROXINE [Concomitant]
     Indication: HYPOTHYROIDISM
     Dosage: 75 mcg, qd
  7. HYDROCHLOORTHIAZIDE [Concomitant]
     Dosage: UNK
  8. TOPROL XL [Concomitant]
     Dosage: 100 mg, qd
     Route: 048
  9. CLONIDINE HCL [Concomitant]
     Dosage: 0.2 mg, qd
  10. ASPIRIN [Concomitant]
     Dosage: 325 mg, qd
  11. VITAMIN B [Concomitant]
     Dosage: 1 daily
     Route: 048
  12. FOLIC ACID [Concomitant]
     Dosage: 800 mcg, qd
     Route: 048
  13. CALCIUM [Concomitant]
     Dosage: 600 mg, qd
     Route: 048
  14. CENTRUM SILVER [Concomitant]
     Dosage: UNK, qd
  15. SPIRIVA [Concomitant]
  16. SYMBICORT [Concomitant]
     Dosage: UNK, bid
  17. ALBUTEROL [Concomitant]
  18. TRAZODONE HCL [Concomitant]
     Dosage: 50-100 mg, prn

REACTIONS (3)
  - Confusional state [Unknown]
  - Dyspnoea [Unknown]
  - Platelet count decreased [Unknown]
